FAERS Safety Report 19813160 (Version 1)
Quarter: 2021Q3

REPORT INFORMATION
  Report Type: Spontaneous
  Country: US (occurrence: US)
  Receive Date: 20210908
  Receipt Date: 20210908
  Transmission Date: 20211014
  Serious: Yes (Hospitalization)
  Sender: FDA-Public Use
  Company Number: None

PATIENT
  Sex: Male

DRUGS (5)
  1. HUMIRA [Suspect]
     Active Substance: ADALIMUMAB
     Indication: CROHN^S DISEASE
     Dosage: ?          OTHER DOSE:INJ 2 PENS (160MG);OTHER FREQUENCY:ON DAY 1;?
     Route: 058
     Dates: start: 20210813
  2. FERROUS SULF [Concomitant]
     Active Substance: FERROUS SULFATE
  3. PANTROPRAZOLE [Concomitant]
  4. TYLENOL [Concomitant]
     Active Substance: ACETAMINOPHEN
  5. HUMIRA [Suspect]
     Active Substance: ADALIMUMAB
     Dosage: ?          OTHER DOSE:INJ 1 PEN (80MG);OTHER FREQUENCY:ON DAY 15;?
     Route: 058

REACTIONS (4)
  - Lymphadenopathy [None]
  - Crohn^s disease [None]
  - Chest pain [None]
  - Sinusitis [None]
